FAERS Safety Report 5583780-1 (Version None)
Quarter: 2008Q1

REPORT INFORMATION
  Report Type: 
  Country: None (occurrence: None)
  Receive Date: 20080108
  Receipt Date: 20080104
  Transmission Date: 20080703
  Serious: Yes (Hospitalization, Other)
  Sender: FDA-Public Use
  Company Number: FR-BRISTOL-MYERS SQUIBB COMPANY-14031686

PATIENT
  Age: 82 Year
  Sex: Female

DRUGS (9)
  1. COAPROVEL FILM-COATED TABS 150/12.5 MG [Suspect]
     Indication: HYPERTENSION
     Dosage: 1 DOSAGE FORM = 150MG/12.5MG
     Dates: start: 20070507, end: 20070620
  2. METHOTREXATE SODIUM [Suspect]
     Indication: RHEUMATOID ARTHRITIS
     Dates: start: 20060101, end: 20070612
  3. CORTANCYL [Concomitant]
     Dates: start: 20070507
  4. LASILIX [Concomitant]
     Dates: start: 20070507
  5. LOVENOX [Concomitant]
     Route: 058
     Dates: start: 20070507
  6. KARDEGIC [Concomitant]
     Dosage: 1 SACHET/DAY
     Dates: start: 20070507
  7. INEXIUM [Concomitant]
     Dates: start: 20070507
  8. OXYCONTIN [Concomitant]
     Dates: start: 20070507
  9. OXYNORM [Concomitant]
     Dates: start: 20070507

REACTIONS (2)
  - BONE MARROW FAILURE [None]
  - HYPOTENSION [None]
